FAERS Safety Report 20707927 (Version 8)
Quarter: 2022Q3

REPORT INFORMATION
  Report Type: Report from Study
  Country: DE (occurrence: DE)
  Receive Date: 20220414
  Receipt Date: 20220830
  Transmission Date: 20221026
  Serious: Yes (Hospitalization)
  Sender: FDA-Public Use
  Company Number: DE-NOVARTISPH-NVSC2022DE068269

PATIENT
  Age: 78 Year
  Sex: Male
  Weight: 70.2 kg

DRUGS (9)
  1. DABRAFENIB [Suspect]
     Active Substance: DABRAFENIB
     Indication: BRAF gene mutation
     Dosage: 300 MG
     Route: 048
     Dates: start: 20220305, end: 20220313
  2. DABRAFENIB [Suspect]
     Active Substance: DABRAFENIB
     Indication: Malignant melanoma
     Dosage: 300 MG (75 MG, (2-0-2)
     Route: 048
     Dates: end: 20220316
  3. DABRAFENIB [Suspect]
     Active Substance: DABRAFENIB
     Dosage: 300 MG
     Route: 048
     Dates: start: 20220305, end: 20220406
  4. DABRAFENIB [Suspect]
     Active Substance: DABRAFENIB
     Dosage: 300 MG
     Route: 048
     Dates: start: 20220305, end: 20220316
  5. TRAMETINIB [Suspect]
     Active Substance: TRAMETINIB
     Indication: BRAF gene mutation
     Dosage: 2 MG
     Route: 048
     Dates: start: 20220305, end: 20220313
  6. TRAMETINIB [Suspect]
     Active Substance: TRAMETINIB
     Indication: Malignant melanoma
     Dosage: 2 MG, QD (1-0-0)
     Route: 048
     Dates: end: 20220316
  7. TRAMETINIB [Suspect]
     Active Substance: TRAMETINIB
     Dosage: 2 MG
     Route: 048
     Dates: start: 20220305, end: 20220406
  8. TRAMETINIB [Suspect]
     Active Substance: TRAMETINIB
     Dosage: 2 MG
     Route: 048
     Dates: start: 20220305, end: 20220316
  9. PIPERACILLIN [Concomitant]
     Active Substance: PIPERACILLIN
     Indication: Product used for unknown indication
     Dosage: UNK
     Route: 065
     Dates: start: 20220316, end: 20220322

REACTIONS (7)
  - Pyrexia [Recovered/Resolved]
  - Leukopenia [Recovered/Resolved]
  - Thrombocytopenia [Recovered/Resolved]
  - Pleural effusion [Recovered/Resolved]
  - Oedema peripheral [Recovered/Resolved]
  - Chills [Recovered/Resolved]
  - Chills [Recovered/Resolved]

NARRATIVE: CASE EVENT DATE: 20220314
